FAERS Safety Report 24390665 (Version 3)
Quarter: 2024Q4

REPORT INFORMATION
  Report Type: Spontaneous
  Country: AR (occurrence: AR)
  Receive Date: 20241003
  Receipt Date: 20241223
  Transmission Date: 20250115
  Serious: Yes (Other)
  Sender: GLAXOSMITHKLINE
  Company Number: AR-GLAXOSMITHKLINE-AR2024AMR068519

PATIENT

DRUGS (2)
  1. ZEJULA [Suspect]
     Active Substance: NIRAPARIB
     Indication: Product used for unknown indication
     Dosage: UNK
     Dates: end: 20240805
  2. ZEJULA [Suspect]
     Active Substance: NIRAPARIB
     Dosage: 200 MG, QD
     Dates: start: 20240822, end: 20241204

REACTIONS (5)
  - Haemolysis [Recovered/Resolved]
  - Red blood cell count decreased [Not Recovered/Not Resolved]
  - Toxicity to various agents [Unknown]
  - Weight decreased [Unknown]
  - Cough [Unknown]
